FAERS Safety Report 11110330 (Version 1)
Quarter: 2015Q2

REPORT INFORMATION
  Report Type: Spontaneous
  Country: US (occurrence: None)
  Receive Date: 20150512
  Receipt Date: 20150512
  Transmission Date: 20150821
  Serious: Yes (Hospitalization)
  Sender: FDA-Public Use
  Company Number: None

PATIENT
  Age: 59 Year
  Sex: Female

DRUGS (1)
  1. IMBRUVICA [Suspect]
     Active Substance: IBRUTINIB
     Indication: CHRONIC LYMPHOCYTIC LEUKAEMIA
     Route: 048
     Dates: start: 20150119

REACTIONS (6)
  - Rash [None]
  - Peripheral swelling [None]
  - Pyrexia [None]
  - Dizziness [None]
  - Asthenia [None]
  - Influenza like illness [None]

NARRATIVE: CASE EVENT DATE: 20150508
